FAERS Safety Report 5514005-0 (Version None)
Quarter: 2007Q4

REPORT INFORMATION
  Report Type: 
  Country: None (occurrence: None)
  Receive Date: 20071113
  Receipt Date: 20071030
  Transmission Date: 20080405
  Serious: Yes (Hospitalization)
  Sender: FDA-Public Use
  Company Number: IL-AMGEN-UK250989

PATIENT
  Age: 45 Year
  Sex: Female
  Weight: 50 kg

DRUGS (3)
  1. NEULASTIM [Suspect]
     Indication: CHEMOTHERAPY
     Route: 058
     Dates: start: 20071001, end: 20071001
  2. ADRIAMYCIN PFS [Suspect]
  3. CYTOXAN [Suspect]

REACTIONS (3)
  - FEBRILE NEUTROPENIA [None]
  - RESPIRATORY FAILURE [None]
  - SEPTIC SHOCK [None]
